APPROVED DRUG PRODUCT: MIDAZOLAM IN 0.8% SODIUM CHLORIDE
Active Ingredient: MIDAZOLAM
Strength: 100MG/100ML (1MG/ML)
Dosage Form/Route: SOLUTION;INTRAVENOUS
Application: N215868 | Product #002
Applicant: EXELA PHARMA SCIENCES LLC
Approved: Jul 20, 2022 | RLD: Yes | RS: No | Type: DISCN